FAERS Safety Report 11571528 (Version 1)
Quarter: 2015Q3

REPORT INFORMATION
  Report Type: Spontaneous
  Country: US (occurrence: US)
  Receive Date: 20150916
  Receipt Date: 20150916
  Transmission Date: 20151125
  Serious: No
  Sender: FDA-Public Use
  Company Number: US-ELI_LILLY_AND_COMPANY-US200909006147

PATIENT
  Sex: Female

DRUGS (4)
  1. CATAPRES /00171101/ [Concomitant]
     Active Substance: CLONIDINE
     Dosage: 0.1 MG, DAILY (1/D)
  2. METAMUCIL [Concomitant]
     Active Substance: PLANTAGO SEED
  3. VITAMINS /90003601/ [Concomitant]
     Active Substance: VITAMINS
  4. FORTEO [Suspect]
     Active Substance: TERIPARATIDE
     Dosage: UNK, UNK
     Dates: start: 200907

REACTIONS (2)
  - Blood parathyroid hormone increased [Not Recovered/Not Resolved]
  - Peripheral swelling [Not Recovered/Not Resolved]

NARRATIVE: CASE EVENT DATE: 2009
